FAERS Safety Report 13895924 (Version 6)
Quarter: 2022Q2

REPORT INFORMATION
  Report Type: Report from Study
  Country: JP (occurrence: JP)
  Receive Date: 20170823
  Receipt Date: 20220505
  Transmission Date: 20220721
  Serious: Yes (Hospitalization)
  Sender: FDA-Public Use
  Company Number: JP-ABBVIE-17K-087-2072808-00

PATIENT
  Age: 62 Year
  Sex: Male
  Weight: 48 kg

DRUGS (2)
  1. CARBIDOPA\LEVODOPA [Suspect]
     Active Substance: CARBIDOPA\LEVODOPA
     Indication: Parkinson^s disease
     Dosage: MD: 9 ML,CD: 2.5 ML/HR A 16 HRS,ED: 1 ML/UNIT A 3
     Route: 050
     Dates: start: 20170210
  2. CARBIDOPA\LEVODOPA [Suspect]
     Active Substance: CARBIDOPA\LEVODOPA

REACTIONS (3)
  - Pneumonia [Recovering/Resolving]
  - Hospitalisation [Unknown]
  - Device use error [Unknown]

NARRATIVE: CASE EVENT DATE: 20170101
